FAERS Safety Report 6037512-3 (Version None)
Quarter: 2009Q1

REPORT INFORMATION
  Report Type: 
  Country: None (occurrence: None)
  Receive Date: 20090113
  Receipt Date: 20081229
  Transmission Date: 20090719
  Serious: Yes (Other)
  Sender: FDA-Public Use
  Company Number: KADN20080443

PATIENT
  Age: 51 Year
  Sex: Male
  Weight: 127.0072 kg

DRUGS (7)
  1. KADIAN [Suspect]
     Indication: BACK PAIN
     Dosage: 1 IN 12 HR, ORAL
     Route: 048
     Dates: start: 20060101, end: 20081225
  2. HYDROCODONE BITARTRATE [Suspect]
  3. ATENOLOL [Concomitant]
  4. VERAPAMIL [Concomitant]
  5. FUROSEMIDE [Concomitant]
  6. LISINOPRIL [Concomitant]
  7. ZETIA [Concomitant]

REACTIONS (5)
  - CHILLS [None]
  - DRUG WITHDRAWAL SYNDROME [None]
  - HEART RATE INCREASED [None]
  - HYPERHIDROSIS [None]
  - PAIN [None]
